FAERS Safety Report 9739535 (Version 1)
Quarter: 2013Q4

REPORT INFORMATION
  Report Type: Spontaneous
  Country: FR (occurrence: FR)
  Receive Date: 20131209
  Receipt Date: 20131209
  Transmission Date: 20140711
  Serious: Yes (Hospitalization, Other)
  Sender: FDA-Public Use
  Company Number: FR-009507513-1312FRA000306

PATIENT
  Age: 56 Year
  Sex: Female

DRUGS (3)
  1. TEMODAL [Suspect]
     Indication: GLIOBLASTOMA
     Dosage: 75 MG/M2, QD
     Route: 048
     Dates: start: 20130826, end: 20131004
  2. KEPRA [Suspect]
     Dosage: 1 DF, BID
     Route: 048
     Dates: start: 201308, end: 20131025
  3. INEXIUM [Suspect]
     Dosage: 1 DF, QD
     Route: 048
     Dates: start: 201308, end: 20131028

REACTIONS (1)
  - Agranulocytosis [Recovered/Resolved]
